FAERS Safety Report 8565623-7 (Version None)
Quarter: 2012Q3

REPORT INFORMATION
  Report Type: 
  Country: None (occurrence: None)
  Receive Date: 20120803
  Receipt Date: 20120706
  Transmission Date: 20120928
  Serious: Yes (Life-Threatening, Hospitalization)
  Sender: FDA-Public Use
  Company Number: US-BRISTOL-MYERS SQUIBB COMPANY-16814832

PATIENT
  Age: 33 Year
  Sex: Female

DRUGS (4)
  1. ZOLOFT [Concomitant]
     Indication: DEPRESSION
     Route: 048
     Dates: start: 20120101
  2. ARIPIPRAZOLE [Suspect]
     Indication: SCHIZOPHRENIA
     Dosage: IM DEPOT
     Route: 030
     Dates: start: 20120531, end: 20120627
  3. ABILIFY [Suspect]
     Indication: SCHIZOPHRENIA
     Dosage: 15MG FRM 03JUL12
     Route: 048
     Dates: start: 20120627
  4. ATIVAN [Concomitant]
     Dates: start: 20060101

REACTIONS (1)
  - PSYCHIATRIC SYMPTOM [None]
